FAERS Safety Report 13050317 (Version 2)
Quarter: 2017Q1

REPORT INFORMATION
  Report Type: Spontaneous
  Country: US (occurrence: US)
  Receive Date: 20161221
  Receipt Date: 20170105
  Transmission Date: 20170428
  Serious: No
  Sender: FDA-Public Use
  Company Number: US-AMGEN-USASP2016179082

PATIENT
  Sex: Female

DRUGS (10)
  1. ETANERCEPT [Suspect]
     Active Substance: ETANERCEPT
     Indication: RHEUMATOID ARTHRITIS
     Dosage: 25 MG, 2 TIMES/WK
     Route: 065
  2. ALEFACEPT [Concomitant]
     Active Substance: ALEFACEPT
     Dosage: UNK
  3. RITUXIMAB [Concomitant]
     Active Substance: RITUXIMAB
     Dosage: UNK
  4. OMALIZUMAB [Concomitant]
     Active Substance: OMALIZUMAB
     Dosage: UNK
  5. CETUXIMAB. [Concomitant]
     Active Substance: CETUXIMAB
     Dosage: UNK
  6. ETANERCEPT [Suspect]
     Active Substance: ETANERCEPT
     Indication: DERMATOSIS
  7. EFALIZUMAB [Concomitant]
     Active Substance: EFALIZUMAB
     Dosage: UNK
  8. ETANERCEPT [Suspect]
     Active Substance: ETANERCEPT
     Indication: ACUTE FEBRILE NEUTROPHILIC DERMATOSIS
  9. BASILIXIMAB [Concomitant]
     Active Substance: BASILIXIMAB
     Dosage: UNK
  10. DACLIZUMAB [Concomitant]
     Active Substance: DACLIZUMAB
     Dosage: UNK

REACTIONS (1)
  - Off label use [Unknown]
